FAERS Safety Report 18259234 (Version 3)
Quarter: 2020Q4

REPORT INFORMATION
  Report Type: Other
  Country: JP (occurrence: JP)
  Receive Date: 20200911
  Receipt Date: 20201019
  Transmission Date: 20210113
  Serious: Yes (Other)
  Sender: FDA-Public Use
  Company Number: JP-ROCHE-2676172

PATIENT
  Age: 64 Year
  Sex: Female

DRUGS (1)
  1. ACTEMRA [Suspect]
     Active Substance: TOCILIZUMAB
     Indication: CASTLEMAN^S DISEASE
     Dosage: DOSE INTERVAL UNCERTAINTY
     Route: 065

REACTIONS (3)
  - Off label use [Unknown]
  - Thrombotic microangiopathy [Unknown]
  - Intentional product use issue [Unknown]
